FAERS Safety Report 9688859 (Version 1)
Quarter: 2013Q4

REPORT INFORMATION
  Report Type: Spontaneous
  Country: US (occurrence: US)
  Receive Date: 20131114
  Receipt Date: 20131114
  Transmission Date: 20140711
  Serious: Yes (Other)
  Sender: FDA-Public Use
  Company Number: US-AMGEN-USASP2013079221

PATIENT
  Age: 41 Year
  Sex: Male

DRUGS (1)
  1. PROLIA [Suspect]
     Indication: HYPERCALCAEMIA
     Dosage: UNK
     Route: 065

REACTIONS (2)
  - Hypophosphataemia [Unknown]
  - Hypocalcaemia [Not Recovered/Not Resolved]
